FAERS Safety Report 24998784 (Version 1)
Quarter: 2025Q1

REPORT INFORMATION
  Report Type: Spontaneous
  Country: US (occurrence: US)
  Receive Date: 20250222
  Receipt Date: 20250222
  Transmission Date: 20250409
  Serious: No
  Sender: SANOFI AVENTIS
  Company Number: US-SA-2025SA043049

PATIENT
  Age: 22 Year
  Sex: Male

DRUGS (1)
  1. DUPIXENT [Suspect]
     Active Substance: DUPILUMAB
     Indication: Dermatitis atopic
     Dosage: 300 MG, QOW
     Route: 058

REACTIONS (8)
  - Eczema [Unknown]
  - Eczema asteatotic [Unknown]
  - Skin fissures [Unknown]
  - Eye discharge [Unknown]
  - Eyelid margin crusting [Unknown]
  - Pruritus [Unknown]
  - Swelling of eyelid [Unknown]
  - Blepharitis [Unknown]
